FAERS Safety Report 6454561-1 (Version None)
Quarter: 2009Q4

REPORT INFORMATION
  Report Type: 
  Country: None (occurrence: None)
  Receive Date: 20091118
  Receipt Date: 20091112
  Transmission Date: 20100525
  Serious: Yes (Death)
  Sender: FDA-Public Use
  Company Number: 2009US003899

PATIENT
  Sex: Male

DRUGS (8)
  1. PROGRAF [Suspect]
     Indication: RENAL TRANSPLANT
     Dosage: 3 MG, BID, ORAL
     Route: 048
     Dates: start: 20000101, end: 20090801
  2. INSULIN (INSULIN) [Concomitant]
  3. PRIMAXIN [Concomitant]
  4. ZOFRAN [Concomitant]
  5. PROTONIX [Concomitant]
  6. CELLCEPT [Concomitant]
  7. PREDNISONE TAB [Concomitant]
  8. NORVASC [Concomitant]

REACTIONS (1)
  - DEATH [None]
